FAERS Safety Report 6086493-5 (Version None)
Quarter: 2009Q1

REPORT INFORMATION
  Report Type: 
  Country: None (occurrence: None)
  Receive Date: 20090223
  Receipt Date: 20090218
  Transmission Date: 20090719
  Serious: Yes (Other)
  Sender: FDA-Public Use
  Company Number: US-JNJFOC-20090204894

PATIENT
  Age: 38 Year
  Sex: Female

DRUGS (1)
  1. ELMIRON [Suspect]
     Indication: PAIN
     Route: 048

REACTIONS (2)
  - ARTHRITIS [None]
  - HEADACHE [None]
